FAERS Safety Report 12552093 (Version 1)
Quarter: 2016Q3

REPORT INFORMATION
  Report Type: Spontaneous
  Country: US (occurrence: None)
  Receive Date: 20160712
  Receipt Date: 20160712
  Transmission Date: 20161109
  Serious: Yes (Death, Hospitalization)
  Sender: FDA-Public Use
  Company Number: None

PATIENT
  Age: 95 Year
  Sex: Female
  Weight: 56.7 kg

DRUGS (17)
  1. MICARDIS [Concomitant]
     Active Substance: TELMISARTAN
  2. VITAMIN D [Concomitant]
     Active Substance: CHOLECALCIFEROL
  3. BETAMETHASONE/CLOTRIMAZOLE (LOTRISONE CREAM) [Concomitant]
  4. NITRO PATCH [Concomitant]
     Active Substance: NITROGLYCERIN
  5. POTASSIUM [Concomitant]
     Active Substance: POTASSIUM
  6. LIDODERM [Concomitant]
     Active Substance: LIDOCAINE
  7. CLONIDINE. [Concomitant]
     Active Substance: CLONIDINE
  8. DIGOXIN. [Concomitant]
     Active Substance: DIGOXIN
  9. NAPROXEN SODIUM. [Concomitant]
     Active Substance: NAPROXEN SODIUM
  10. WARFARIN SODIUM. [Concomitant]
     Active Substance: WARFARIN SODIUM
  11. CEPHALEXIN - GENERIC FOR KEFLEX AUROBINDO [Suspect]
     Active Substance: CEPHALEXIN
     Indication: ERYTHEMA
     Route: 048
     Dates: start: 20151130, end: 20151204
  12. VITAMIN B COMPLEX [Concomitant]
     Active Substance: CYANOCOBALAMIN\DEXPANTHENOL\NIACINAMIDE\PYRIDOXINE HYDROCHLORIDE\RIBOFLAVIN 5^-PHOSPHATE SODIUM\THIAMINE HYDROCHLORIDE\VITAMIN B COMPLEX
  13. MAGNESIUM [Concomitant]
     Active Substance: MAGNESIUM
  14. COUMADIN [Concomitant]
     Active Substance: WARFARIN SODIUM
  15. METOPROLOL. [Concomitant]
     Active Substance: METOPROLOL
  16. DILTIAZEM. [Concomitant]
     Active Substance: DILTIAZEM
  17. TYLENOL [Concomitant]
     Active Substance: ACETAMINOPHEN

REACTIONS (6)
  - Prescribed overdose [None]
  - Dehydration [None]
  - Weight decreased [None]
  - Drug ineffective [None]
  - Clostridium difficile colitis [None]
  - Decreased appetite [None]

NARRATIVE: CASE EVENT DATE: 20151222
